FAERS Safety Report 24642779 (Version 1)
Quarter: 2024Q4

REPORT INFORMATION
  Report Type: Spontaneous
  Country: TR (occurrence: TR)
  Receive Date: 20241120
  Receipt Date: 20241120
  Transmission Date: 20250114
  Serious: Yes (Other)
  Sender: NOVARTIS
  Company Number: TR-002147023-NVSC2024TR221601

PATIENT

DRUGS (1)
  1. TRILEPTAL [Suspect]
     Active Substance: OXCARBAZEPINE
     Indication: Epilepsy
     Dosage: 600 MG, QD (IN THE EVENING 600MG)
     Route: 065

REACTIONS (4)
  - Seizure [Unknown]
  - Incorrect dose administered [Unknown]
  - Product supply issue [Unknown]
  - Intentional dose omission [Unknown]
